FAERS Safety Report 8184958-3 (Version None)
Quarter: 2012Q1

REPORT INFORMATION
  Report Type: 
  Country: None (occurrence: None)
  Receive Date: 20120305
  Receipt Date: 20120220
  Transmission Date: 20120608
  Serious: Yes (Other)
  Sender: FDA-Public Use
  Company Number: FR-GLAXOSMITHKLINE-B0783559A

PATIENT
  Age: 90 Year
  Sex: Female

DRUGS (8)
  1. ENALAPRIL MALEATE [Concomitant]
     Route: 065
  2. TANAKAN [Concomitant]
     Route: 065
  3. PANTOPRAZOLE [Concomitant]
     Route: 065
  4. LERCANIDIPINE [Concomitant]
     Route: 065
  5. PROTELOS [Concomitant]
     Route: 065
  6. VALACYCLOVIR HYDROCHLORIDE [Suspect]
     Indication: HERPES ZOSTER
     Dosage: 1000MG TWICE PER DAY
     Route: 048
     Dates: start: 20120201
  7. BETASERON [Concomitant]
     Route: 065
  8. CALCIUM [Concomitant]
     Route: 065

REACTIONS (3)
  - DIARRHOEA [None]
  - PRESYNCOPE [None]
  - ABDOMINAL PAIN [None]
